FAERS Safety Report 14073585 (Version 1)
Quarter: 2017Q4

REPORT INFORMATION
  Report Type: Spontaneous
  Country: CA (occurrence: CA)
  Receive Date: 20171011
  Receipt Date: 20171011
  Transmission Date: 20180321
  Serious: Yes (Other)
  Sender: FDA-Public Use
  Company Number: CA-TEVA-815025ACC

PATIENT
  Sex: Male

DRUGS (2)
  1. ACTONEL [Suspect]
     Active Substance: RISEDRONATE SODIUM
     Indication: PRODUCT USED FOR UNKNOWN INDICATION
     Route: 065
  2. ACTONEL [Suspect]
     Active Substance: RISEDRONATE SODIUM
     Dosage: DELAYED-RELEASE TABLET,  ON AN UNKNOWN DATE, ACTONEL WAS RESTARTED
     Route: 065

REACTIONS (2)
  - Abdominal pain upper [Recovered/Resolved]
  - Prostate cancer [Unknown]
